FAERS Safety Report 18591944 (Version 2)
Quarter: 2021Q1

REPORT INFORMATION
  Report Type: Report from Study
  Country: US (occurrence: US)
  Receive Date: 20201208
  Receipt Date: 20210118
  Transmission Date: 20210419
  Serious: Yes (Hospitalization)
  Sender: FDA-Public Use
  Company Number: US-TEVA-2020-US-1856288

PATIENT
  Age: 62 Year
  Sex: Female

DRUGS (3)
  1. ENOXAPARIN [Suspect]
     Active Substance: ENOXAPARIN
     Indication: ANTICOAGULANT THERAPY
     Dosage: 160 MILLIGRAM DAILY;
     Route: 065
  2. HEPARIN [Suspect]
     Active Substance: HEPARIN SODIUM
     Dosage: 15000 IU (INTERNATIONAL UNIT) DAILY; GIVEN EVERY 8 HOURS AFTER SURGERY
     Route: 065
  3. HEPARIN [Suspect]
     Active Substance: HEPARIN SODIUM
     Indication: THROMBOSIS PROPHYLAXIS
     Dosage: GIVEN WITHIN 2 HOURS OF INITIATING SURGERY (SINGLE DOSE)
     Route: 058

REACTIONS (1)
  - Haemothorax [Unknown]
